FAERS Safety Report 5708858-0 (Version None)
Quarter: 2008Q2

REPORT INFORMATION
  Report Type: 
  Country: None (occurrence: None)
  Receive Date: 20080416
  Receipt Date: 20080402
  Transmission Date: 20081010
  Serious: No
  Sender: FDA-Public Use
  Company Number: 002#2#2008-00199

PATIENT
  Age: 64 Year
  Sex: Female

DRUGS (9)
  1. NEUPRO [Suspect]
     Dosage: 2MG/24H,1 IN 1  D,TRANSDERMAL; 4MG/24H,1 IN 1 D,TRANSDERMAL;  6MG/24H,1 IN 1 D,TRANSDERMAL
     Route: 062
     Dates: start: 20070101, end: 20070101
  2. NEUPRO [Suspect]
     Dosage: 2MG/24H,1 IN 1  D,TRANSDERMAL; 4MG/24H,1 IN 1 D,TRANSDERMAL;  6MG/24H,1 IN 1 D,TRANSDERMAL
     Route: 062
     Dates: start: 20070101
  3. NEUPRO [Suspect]
     Dosage: 2MG/24H,1 IN 1  D,TRANSDERMAL; 4MG/24H,1 IN 1 D,TRANSDERMAL;  6MG/24H,1 IN 1 D,TRANSDERMAL
     Route: 062
     Dates: start: 20070101
  4. SYNTHROID [Concomitant]
  5. TOPROL-XL [Concomitant]
  6. FISH OIL/OMEGA 3 [Concomitant]
  7. COENZYME Q10 [Concomitant]
  8. CALCIUM [Concomitant]
  9. VITAMIN E [Concomitant]

REACTIONS (6)
  - ABNORMAL DREAMS [None]
  - APPLICATION SITE ERYTHEMA [None]
  - APPLICATION SITE PRURITUS [None]
  - FATIGUE [None]
  - SCREAMING [None]
  - TREMOR [None]
